FAERS Safety Report 4894806-2 (Version None)
Quarter: 2006Q1

REPORT INFORMATION
  Report Type: 
  Country: None (occurrence: None)
  Receive Date: 20060126
  Receipt Date: 20060126
  Transmission Date: 20060701
  Serious: Yes (Hospitalization)
  Sender: FDA-Public Use
  Company Number: None

PATIENT
  Sex: Female
  Weight: 48.9885 kg

DRUGS (14)
  1. HUMIRA [Suspect]
     Indication: POLYMYALGIA RHEUMATICA
     Dates: start: 20051115, end: 20051115
  2. FOSAMAX [Concomitant]
  3. NORVASC [Concomitant]
  4. DURAGESIC-100 [Concomitant]
  5. TRAMADOL HCL [Concomitant]
  6. LOPRESSOR [Concomitant]
  7. CELEBREX [Concomitant]
  8. CAPOTEN [Concomitant]
  9. HYDRODIURIL [Concomitant]
  10. METHOTREXATE [Concomitant]
  11. FOLIC ACID [Concomitant]
  12. FISH OIL [Concomitant]
  13. MULTI-VITAMIN [Concomitant]
  14. CALCIUM GLUCONATE [Concomitant]

REACTIONS (7)
  - ANXIETY [None]
  - CONFUSIONAL STATE [None]
  - ENCEPHALOPATHY [None]
  - HALLUCINATION [None]
  - MEMORY IMPAIRMENT [None]
  - MENTAL STATUS CHANGES [None]
  - RESTLESSNESS [None]
